FAERS Safety Report 9476836 (Version 1)
Quarter: 2013Q3

REPORT INFORMATION
  Report Type: Spontaneous
  Country: US (occurrence: US)
  Receive Date: 20130826
  Receipt Date: 20130826
  Transmission Date: 20140515
  Serious: No
  Sender: FDA-Public Use
  Company Number: US-TARO-2012P1064813

PATIENT
  Age: 51 Year
  Sex: Female
  Weight: 56.7 kg

DRUGS (3)
  1. CLOBETASOL PROPIONATE CREAM USP 0.05% [Suspect]
     Indication: ECZEMA
     Route: 061
     Dates: start: 20121030, end: 20121106
  2. MULTIVITAMIN [Concomitant]
  3. CALCIUM WITH VITAMIN D [Concomitant]

REACTIONS (5)
  - Application site pain [Recovering/Resolving]
  - Drug ineffective [Not Recovered/Not Resolved]
  - Skin disorder [Recovering/Resolving]
  - Scab [Not Recovered/Not Resolved]
  - Folliculitis [Recovering/Resolving]
